FAERS Safety Report 25646213 (Version 1)
Quarter: 2025Q3

REPORT INFORMATION
  Report Type: Spontaneous
  Country: US (occurrence: US)
  Receive Date: 20250805
  Receipt Date: 20250805
  Transmission Date: 20251021
  Serious: Yes (Other)
  Sender: NOVO NORDISK
  Company Number: US-NOVOPROD-1490256

PATIENT
  Age: 46 Year

DRUGS (1)
  1. RYBELSUS [Suspect]
     Active Substance: SEMAGLUTIDE
     Indication: Weight control
     Dates: start: 202111, end: 202311

REACTIONS (3)
  - Cyclic vomiting syndrome [Not Recovered/Not Resolved]
  - Emotional distress [Not Recovered/Not Resolved]
  - Off label use [Unknown]
